FAERS Safety Report 6431181-6 (Version None)
Quarter: 2009Q4

REPORT INFORMATION
  Report Type: 
  Country: None (occurrence: None)
  Receive Date: 20091105
  Receipt Date: 20091105
  Transmission Date: 20100525
  Serious: No
  Sender: FDA-Public Use
  Company Number: None

PATIENT
  Age: 56 Year
  Sex: Female
  Weight: 68.0396 kg

DRUGS (12)
  1. HUMIRA [Suspect]
     Indication: RHEUMATOID ARTHRITIS
     Dosage: 40 MGS QQW SQ
     Route: 058
     Dates: start: 20090701, end: 20091011
  2. ARAVA [Concomitant]
  3. LISINOPRIL [Concomitant]
  4. CEPHALEXIN [Concomitant]
  5. NOVOLIN R [Concomitant]
  6. NOVOLIN HPH [Concomitant]
  7. VIT D [Concomitant]
  8. HYDROCODONE BITARTRATE AND ACETAMINOPHEN [Concomitant]
  9. METOPROLOL [Concomitant]
  10. CINNAMON CAPS [Concomitant]
  11. GLUCOSAMINE CHON. [Concomitant]
  12. SCHISANDRA [Concomitant]

REACTIONS (2)
  - SKIN ULCER [None]
  - ULCER [None]
